FAERS Safety Report 9058583 (Version 1)
Quarter: 2013Q1

REPORT INFORMATION
  Report Type: Spontaneous
  Country: US (occurrence: US)
  Receive Date: 20130211
  Receipt Date: 20130211
  Transmission Date: 20140127
  Serious: No
  Sender: FDA-Public Use
  Company Number: US-BAYER-2013-004442

PATIENT
  Age: 65 Year
  Sex: Male

DRUGS (6)
  1. LEVITRA [Suspect]
     Indication: ERECTILE DYSFUNCTION
     Dosage: 20 MG, OW
     Route: 048
     Dates: start: 2009, end: 20130104
  2. SIMVASTATIN [Concomitant]
  3. HYZAAR [Concomitant]
  4. LOSARTAN [Concomitant]
  5. BABY ASPIRIN [Concomitant]
  6. VITAMINS [Concomitant]

REACTIONS (9)
  - Drug ineffective [None]
  - Product quality issue [None]
  - Drug ineffective [None]
  - Drug ineffective [None]
  - Drug ineffective [None]
  - Drug ineffective [None]
  - Drug ineffective [None]
  - Drug ineffective [None]
  - Drug administration error [None]
